FAERS Safety Report 7787337-3 (Version None)
Quarter: 2011Q3

REPORT INFORMATION
  Report Type: 
  Country: None (occurrence: None)
  Receive Date: 20110929
  Receipt Date: 20110921
  Transmission Date: 20111222
  Serious: Yes (Other)
  Sender: FDA-Public Use
  Company Number: US-ELI_LILLY_AND_COMPANY-US201109007191

PATIENT
  Sex: Male

DRUGS (2)
  1. CIALIS [Suspect]
     Indication: ERECTILE DYSFUNCTION
     Dosage: 5 MG, QD
  2. CIALIS [Suspect]
     Dosage: 20 MG, UNK
     Dates: start: 20110920, end: 20110920

REACTIONS (4)
  - INTENTIONAL DRUG MISUSE [None]
  - SURGERY [None]
  - DRUG INEFFECTIVE [None]
  - HEADACHE [None]
